FAERS Safety Report 12409968 (Version 1)
Quarter: 2016Q2

REPORT INFORMATION
  Report Type: Spontaneous
  Country: US (occurrence: US)
  Receive Date: 20160527
  Receipt Date: 20160527
  Transmission Date: 20160815
  Serious: No
  Sender: FDA-Public Use
  Company Number: US-JAZZ-2015-US-016099

PATIENT
  Sex: Female
  Weight: 54.42 kg

DRUGS (19)
  1. ESTRADIOL. [Concomitant]
     Active Substance: ESTRADIOL
     Indication: HYSTERECTOMY
     Dosage: 2 MG, QD
     Dates: start: 20150929
  2. XYREM [Suspect]
     Active Substance: SODIUM OXYBATE
     Indication: FIBROMYALGIA
     Dosage: 2.25 G, BID
     Route: 048
     Dates: start: 200712, end: 200801
  3. PRAVASTATIN SODIUM. [Concomitant]
     Active Substance: PRAVASTATIN SODIUM
     Indication: BLOOD CHOLESTEROL INCREASED
     Dosage: 40 MG, QD
     Dates: start: 20150929
  4. BETHANECHOL [Concomitant]
     Active Substance: BETHANECHOL
     Indication: ILL-DEFINED DISORDER
     Dosage: 25 MG,
  5. LOSARTAN POTASSIUM. [Concomitant]
     Active Substance: LOSARTAN POTASSIUM
     Indication: PRODUCT USED FOR UNKNOWN INDICATION
     Dosage: UNK
     Dates: start: 20140902, end: 20141001
  6. MOBIC [Concomitant]
     Active Substance: MELOXICAM
     Indication: INFLAMMATION
     Dosage: 15 MG, QD
     Dates: start: 20150929
  7. LIMBREL [Concomitant]
     Active Substance: FLAVOCOXID
     Indication: SUPPLEMENTATION THERAPY
     Dosage: 500 MG, QD
     Dates: start: 20140304
  8. SAVELLA [Concomitant]
     Active Substance: MILNACIPRAN HYDROCHLORIDE
     Indication: PRODUCT USED FOR UNKNOWN INDICATION
     Dosage: UNK
     Dates: start: 20150929
  9. PERPHENAZINE. [Concomitant]
     Active Substance: PERPHENAZINE
     Indication: PRODUCT USED FOR UNKNOWN INDICATION
     Dosage: UNK
     Dates: start: 20141015, end: 20141015
  10. XYREM [Suspect]
     Active Substance: SODIUM OXYBATE
     Dosage: DOSE ADJUSTMENTS
     Route: 048
  11. LYRICA [Concomitant]
     Active Substance: PREGABALIN
     Indication: PRODUCT USED FOR UNKNOWN INDICATION
     Dosage: UNK
     Dates: start: 20150929
  12. HYDROCHLOROTHIAZIDE. [Concomitant]
     Active Substance: HYDROCHLOROTHIAZIDE
     Indication: PRODUCT USED FOR UNKNOWN INDICATION
     Dosage: UNK
     Dates: start: 20140131, end: 20151007
  13. LORAZEPAM. [Concomitant]
     Active Substance: LORAZEPAM
     Indication: ANXIETY
     Dosage: 1 MG UP TO 4 TIMES DAILY
     Dates: start: 20150929
  14. WELLBUTRIN [Concomitant]
     Active Substance: BUPROPION HYDROCHLORIDE
     Indication: PRODUCT USED FOR UNKNOWN INDICATION
     Dosage: UNK
     Dates: start: 20010101, end: 20141001
  15. LOSARTAN POTASSIUM AND HYDROCHLOROTHIAZIDE [Concomitant]
     Active Substance: HYDROCHLOROTHIAZIDE\LOSARTAN POTASSIUM
     Indication: HYPERTENSION
     Dosage: UNK
     Dates: start: 20150929
  16. AMITRIPTYLINE HCL [Concomitant]
     Active Substance: AMITRIPTYLINE
     Indication: PRODUCT USED FOR UNKNOWN INDICATION
     Dosage: UNK
     Dates: start: 20141015, end: 20141015
  17. PREMARIN [Concomitant]
     Active Substance: ESTROGENS, CONJUGATED
     Indication: PRODUCT USED FOR UNKNOWN INDICATION
     Dosage: UNK
     Dates: start: 20010101, end: 20151007
  18. XYREM [Suspect]
     Active Substance: SODIUM OXYBATE
     Dosage: 5.25 G, BID
     Route: 048
     Dates: start: 201212
  19. ESTRADIOL. [Concomitant]
     Active Substance: ESTRADIOL
     Indication: HORMONE REPLACEMENT THERAPY

REACTIONS (1)
  - Back pain [Not Recovered/Not Resolved]
